FAERS Safety Report 7961271-8 (Version None)
Quarter: 2011Q4

REPORT INFORMATION
  Report Type: 
  Country: None (occurrence: None)
  Receive Date: 20111207
  Receipt Date: 20111202
  Transmission Date: 20120403
  Serious: No
  Sender: FDA-Public Use
  Company Number: PHHY2011DE96849

PATIENT
  Sex: Male

DRUGS (2)
  1. TASIGNA [Suspect]
     Dosage: 800 MG/DAY
     Route: 048
  2. TASIGNA [Suspect]
     Dosage: 400 MG/DAY

REACTIONS (3)
  - ERYTHEMA [None]
  - RASH PUSTULAR [None]
  - DERMATITIS ALLERGIC [None]
